FAERS Safety Report 10451963 (Version 3)
Quarter: 2015Q2

REPORT INFORMATION
  Report Type: Spontaneous
  Country: DE (occurrence: DE)
  Receive Date: 20140915
  Receipt Date: 20150519
  Transmission Date: 20150821
  Serious: Yes (Other)
  Sender: FDA-Public Use
  Company Number: DE-BEH-2014044909

PATIENT
  Age: 29 Year
  Sex: Female

DRUGS (1)
  1. INTRAVENOUS IMMUNOGLOBULIN [Suspect]
     Active Substance: HUMAN IMMUNOGLOBULIN G
     Indication: MILLER FISHER SYNDROME
     Route: 042

REACTIONS (9)
  - Ophthalmoplegia [Recovering/Resolving]
  - Depressed level of consciousness [Recovering/Resolving]
  - Cranial nerve disorder [Recovering/Resolving]
  - Cerebral infarction [Recovering/Resolving]
  - Abasia [Recovering/Resolving]
  - Coordination abnormal [Recovering/Resolving]
  - Posterior reversible encephalopathy syndrome [Recovering/Resolving]
  - Coma [Recovering/Resolving]
  - Treatment failure [Recovering/Resolving]
